FAERS Safety Report 8104369-6 (Version None)
Quarter: 2012Q1

REPORT INFORMATION
  Report Type: 
  Country: None (occurrence: None)
  Receive Date: 20120201
  Receipt Date: 20120124
  Transmission Date: 20120608
  Serious: Yes (Other)
  Sender: FDA-Public Use
  Company Number: US-CELGENEUS-163-21880-12012413

PATIENT

DRUGS (12)
  1. NEUPOGEN [Suspect]
     Indication: MULTIPLE MYELOMA
     Dosage: 10 MICROGRAM/KILOGRAM
     Route: 058
  2. MELPHALAN HYDROCHLORIDE [Concomitant]
     Indication: MULTIPLE MYELOMA
     Dosage: 200 MILLIGRAM/SQ. METER
     Route: 065
  3. CYCLOPHOSPHAMIDE [Suspect]
     Indication: MULTIPLE MYELOMA
     Dosage: 1.5 GM/M2
     Route: 065
  4. VALACYCLOVIR [Concomitant]
     Indication: HERPES ZOSTER
     Route: 065
  5. REVLIMID [Suspect]
     Indication: MULTIPLE MYELOMA
     Route: 048
  6. ACYCLOVIR [Concomitant]
     Indication: HERPES ZOSTER
     Route: 065
  7. FLUCONAZOLE [Concomitant]
     Indication: ANTIFUNGAL PROPHYLAXIS
     Route: 065
  8. CIPROFLOXACIN [Concomitant]
     Route: 065
  9. LEVOFLOXACIN [Concomitant]
     Route: 065
  10. NEUPOGEN [Suspect]
     Dosage: 5 MICROGRAM/KILOGRAM
     Route: 058
  11. ONDANSETRON [Concomitant]
     Dosage: 24 MILLIGRAM
     Route: 048
  12. SODIUM CHLORIDE [Concomitant]
     Dosage: 500 MILLILITER
     Route: 065

REACTIONS (1)
  - BLOOD STEM CELL HARVEST FAILURE [None]
